FAERS Safety Report 9687807 (Version 1)
Quarter: 2013Q4

REPORT INFORMATION
  Report Type: Spontaneous
  Country: US (occurrence: US)
  Receive Date: 20131114
  Receipt Date: 20131114
  Transmission Date: 20140711
  Serious: No
  Sender: FDA-Public Use
  Company Number: US-PFIZER INC-2013320827

PATIENT
  Age: 80 Year
  Sex: Female
  Weight: 54.42 kg

DRUGS (3)
  1. PROTONIX [Suspect]
     Indication: DYSPEPSIA
     Dosage: 40 MG, DAILY
  2. HYDROCODONE [Concomitant]
     Indication: ARTHRALGIA
     Dosage: UNK, 3X/DAY
  3. TYLENOL [Concomitant]
     Indication: ARTHRALGIA
     Dosage: UNK

REACTIONS (3)
  - Nasopharyngitis [Unknown]
  - Rhinorrhoea [Unknown]
  - Malaise [Unknown]
